FAERS Safety Report 20436538 (Version 2)
Quarter: 2022Q4

REPORT INFORMATION
  Report Type: Report from Study
  Country: DE (occurrence: DE)
  Receive Date: 20220207
  Receipt Date: 20221021
  Transmission Date: 20230112
  Serious: Yes (Death, Hospitalization, Other)
  Sender: FDA-Public Use
  Company Number: DE-NOVARTISPH-NVSC2022DE024314

PATIENT
  Sex: Female

DRUGS (4)
  1. ERELZI [Suspect]
     Active Substance: ETANERCEPT-SZZS
     Indication: Rheumatoid arthritis
     Dosage: 50 MG (STRENGTH: 50 MG)
     Route: 065
     Dates: start: 201911, end: 202001
  2. ERELZI [Suspect]
     Active Substance: ETANERCEPT-SZZS
     Dosage: 50 MG (STRENGTH: 50 MG)
     Route: 065
     Dates: start: 202001, end: 202010
  3. BARICITINIB [Suspect]
     Active Substance: BARICITINIB
     Indication: Product used for unknown indication
     Dosage: 2 MG
     Route: 065
     Dates: start: 201911, end: 202001
  4. BARICITINIB [Suspect]
     Active Substance: BARICITINIB
     Dosage: 2 MG
     Route: 065
     Dates: start: 202001, end: 202010

REACTIONS (5)
  - Neoplasm malignant [Fatal]
  - Osteoarthritis [Recovered/Resolved]
  - Osteonecrosis [Recovered/Resolved]
  - Vulval cancer [Recovered/Resolved]
  - Urinary tract infection [Recovered/Resolved]

NARRATIVE: CASE EVENT DATE: 20201023
